FAERS Safety Report 6563989-0 (Version None)
Quarter: 2010Q1

REPORT INFORMATION
  Report Type: 
  Country: None (occurrence: None)
  Receive Date: 20100131
  Receipt Date: 20100119
  Transmission Date: 20100710
  Serious: Yes (Hospitalization)
  Sender: FDA-Public Use
  Company Number: NSADSS2002033296

PATIENT
  Sex: Female
  Weight: 77 kg

DRUGS (28)
  1. REMICADE [Suspect]
     Indication: CROHN'S DISEASE
     Route: 041
     Dates: end: 20080911
  2. REMICADE [Suspect]
     Route: 041
     Dates: end: 20080911
  3. REMICADE [Suspect]
     Route: 041
     Dates: end: 20080911
  4. REMICADE [Suspect]
     Route: 041
     Dates: end: 20080911
  5. REMICADE [Suspect]
     Route: 041
     Dates: end: 20080911
  6. REMICADE [Suspect]
     Route: 041
     Dates: end: 20080911
  7. REMICADE [Suspect]
     Route: 041
     Dates: end: 20080911
  8. REMICADE [Suspect]
     Route: 041
     Dates: end: 20080911
  9. REMICADE [Suspect]
     Route: 041
     Dates: end: 20080911
  10. REMICADE [Suspect]
     Route: 041
     Dates: end: 20080911
  11. REMICADE [Suspect]
     Route: 041
     Dates: end: 20080911
  12. REMICADE [Suspect]
     Route: 041
     Dates: end: 20080911
  13. REMICADE [Suspect]
     Route: 041
     Dates: end: 20080911
  14. REMICADE [Suspect]
     Route: 041
     Dates: end: 20080911
  15. REMICADE [Suspect]
     Route: 041
     Dates: end: 20080911
  16. REMICADE [Suspect]
     Route: 041
     Dates: end: 20080911
  17. REMICADE [Suspect]
     Route: 041
     Dates: end: 20080911
  18. REMICADE [Suspect]
     Route: 041
     Dates: end: 20080911
  19. REMICADE [Suspect]
     Route: 041
     Dates: end: 20080911
  20. REMICADE [Suspect]
     Dosage: 3 INFUSIONS ON UNSPECIFIED DATES (PRIOR ENROLLMENT)
     Route: 041
     Dates: end: 20080911
  21. REMICADE [Suspect]
     Route: 041
     Dates: end: 20080911
  22. REMICADE [Suspect]
     Route: 041
     Dates: end: 20080911
  23. REMICADE [Suspect]
     Route: 041
     Dates: end: 20080911
  24. REMICADE [Suspect]
     Route: 041
     Dates: end: 20080911
  25. AZATHIOPRINE [Concomitant]
  26. ACETAMINOPHEN [Concomitant]
     Indication: PREMEDICATION
  27. ANTIHISTAMINES [Concomitant]
     Indication: PREMEDICATION
  28. STEROIDS NOS [Concomitant]
     Indication: PREMEDICATION

REACTIONS (2)
  - ABORTION SPONTANEOUS [None]
  - DRUG EXPOSURE DURING PREGNANCY [None]
